FAERS Safety Report 8414283-4 (Version None)
Quarter: 2012Q2

REPORT INFORMATION
  Report Type: 
  Country: None (occurrence: None)
  Receive Date: 20120605
  Receipt Date: 20120531
  Transmission Date: 20120825
  Serious: Yes (Hospitalization)
  Sender: FDA-Public Use
  Company Number: CA-TEVA-339416USA

PATIENT
  Sex: Female
  Weight: 80.8 kg

DRUGS (15)
  1. DEXAMETHASONE [Concomitant]
     Indication: NECK PAIN
     Dosage: 4 MILLIGRAM;
     Route: 048
     Dates: start: 20120313, end: 20120410
  2. CALTRO [Concomitant]
     Indication: MINERAL SUPPLEMENTATION
     Dosage: FREQUENCY NOT REPORTED
     Dates: start: 20070101
  3. TYLENOS ES [Concomitant]
     Indication: NECK PAIN
     Dosage: 1 TO 2 TABLETS AS NEEDED FOR NECK PAIN AND FEVER
     Route: 048
     Dates: start: 20120313
  4. TYLENOS ES [Concomitant]
     Indication: PYREXIA
  5. IMMUNE GLOBULIN INTRAVENOUS (HUMAN) [Concomitant]
     Indication: HYPOGAMMAGLOBULINAEMIA
     Dosage: 1 IN 1 M
     Route: 042
     Dates: start: 20120430
  6. TREANDA [Suspect]
     Indication: CHRONIC LYMPHOCYTIC LEUKAEMIA
     Dosage: 100 MG/M2
     Route: 042
     Dates: start: 20120502, end: 20120503
  7. ONDANSETRON [Concomitant]
     Indication: PROPHYLAXIS OF NAUSEA AND VOMITING
     Dosage: UNKNOWN
     Route: 048
  8. CLONAZEPAM [Concomitant]
     Indication: ANXIETY
     Dosage: 0.5 TAB AT BEDTIME IF NEEDED
     Route: 048
     Dates: start: 20110301
  9. VITAMIN D [Concomitant]
     Indication: VITAMIN SUPPLEMENTATION
     Dosage: 1000 IU (INTERNATIONAL UNIT);
     Route: 048
     Dates: start: 20070101
  10. FUCITHALMIC VISCOUS EYE DROP [Concomitant]
     Indication: EYE INFECTION
     Dosage: FREQUENCY NOT REPORTED
     Route: 047
     Dates: start: 20120424, end: 20120501
  11. PREMARIN [Concomitant]
     Indication: VULVOVAGINAL DISCOMFORT
     Dosage: FREQUENCY NOT REPORTED
     Route: 067
     Dates: start: 20111227
  12. ASCORBIC ACID [Concomitant]
     Indication: VITAMIN SUPPLEMENTATION
     Dosage: 250 MILLIGRAM;
     Route: 048
     Dates: start: 20070101
  13. DEXAMETHASONE [Concomitant]
     Dosage: 8 MILLIGRAM;
     Route: 048
     Dates: start: 20120502
  14. MURINE [Concomitant]
     Indication: DRY EYE
     Dosage: 1 TO 2 DROPS IN BOTH EYES AS NEEDED
     Route: 047
     Dates: start: 20110801
  15. VITAMIN B-12 [Concomitant]
     Dosage: 1 DF ONCE DAILY IRREGULAR USE
     Dates: start: 20070101

REACTIONS (1)
  - TUMOUR LYSIS SYNDROME [None]
